FAERS Safety Report 4975737-6 (Version None)
Quarter: 2006Q2

REPORT INFORMATION
  Report Type: 
  Country: None (occurrence: None)
  Receive Date: 20060411
  Receipt Date: 20060327
  Transmission Date: 20061013
  Serious: Yes (Hospitalization)
  Sender: FDA-Public Use
  Company Number: US200603006666

PATIENT
  Age: 57 Year
  Sex: Female
  Weight: 63.5 kg

DRUGS (9)
  1. CYMBALTA [Suspect]
     Indication: SPINE MALFORMATION
     Dosage: SEE IMAGE
     Dates: start: 20060321, end: 20060323
  2. CYMBALTA [Suspect]
     Indication: SPINE MALFORMATION
     Dosage: SEE IMAGE
     Dates: start: 20060324
  3. OXYCODONE (OXYCODONE) [Concomitant]
  4. FENTANYL [Concomitant]
  5. ALPRAZOLAM [Concomitant]
  6. PREVACID [Concomitant]
  7. EXCEDRIN/USA/(ACETYLSALICYLIC ACID, CAFFEINE, PARACETAMOL) [Concomitant]
  8. PERI-COLACE [Concomitant]
  9. CYMBALTA [Suspect]

REACTIONS (12)
  - ANXIETY [None]
  - BLOOD POTASSIUM DECREASED [None]
  - CHILLS [None]
  - DEHYDRATION [None]
  - DRUG INTERACTION [None]
  - DYSPNOEA [None]
  - HOT FLUSH [None]
  - ILLUSION [None]
  - PALPITATIONS [None]
  - SENSORY DISTURBANCE [None]
  - SOMNOLENCE [None]
  - URINARY TRACT INFECTION [None]
